FAERS Safety Report 5006989-4 (Version None)
Quarter: 2006Q1

REPORT INFORMATION
  Report Type: 
  Country: None (occurrence: None)
  Receive Date: 20060320
  Receipt Date: 20050907
  Transmission Date: 20060701
  Serious: Yes (Hospitalization)
  Sender: FDA-Public Use
  Company Number: 2005-09-0462

PATIENT
  Age: 52 Year
  Sex: Female
  Weight: 79.8331 kg

DRUGS (13)
  1. PEG-INTRON [Suspect]
     Indication: HEPATITIS C
     Dosage: SEE IMAGE
     Route: 058
     Dates: start: 20050725, end: 20050829
  2. PEG-INTRON [Suspect]
     Indication: HEPATITIS C
     Dosage: SEE IMAGE
     Route: 058
     Dates: start: 20050926, end: 20051209
  3. REBETOL [Suspect]
     Indication: HEPATITIS C
     Dosage: SEE IMAGE
     Route: 048
     Dates: start: 20050725, end: 20050829
  4. REBETOL [Suspect]
     Indication: HEPATITIS C
     Dosage: SEE IMAGE
     Route: 048
     Dates: start: 20050926
  5. ACYCLOVIR [Concomitant]
  6. ALFALFA TABLETS [Concomitant]
  7. CALCIUM CARBONATE TABLETS [Concomitant]
  8. CLARITIN [Concomitant]
  9. DILTIAZEM HCL SUSTAINED RELEASE CAPSULES [Concomitant]
  10. ENALAPRIL MALEATE TABLETS [Concomitant]
  11. OMEPRAZOLE [Concomitant]
  12. VICODIN [Concomitant]
  13. ZANTAC INJECTABLE SOLUTION [Concomitant]

REACTIONS (5)
  - ASTHENIA [None]
  - CHILLS [None]
  - DYSPNOEA [None]
  - HAEMOGLOBIN DECREASED [None]
  - RED BLOOD CELL COUNT DECREASED [None]
